FAERS Safety Report 15853878 (Version 3)
Quarter: 2019Q3

REPORT INFORMATION
  Report Type: Spontaneous
  Country: US (occurrence: US)
  Receive Date: 20190122
  Receipt Date: 20190924
  Transmission Date: 20191004
  Serious: No
  Sender: FDA-Public Use
  Company Number: US-PFIZER INC-2018013229

PATIENT
  Age: 57 Year
  Sex: Female
  Weight: 78 kg

DRUGS (13)
  1. DOCETAXEL TEVA [Suspect]
     Active Substance: DOCETAXEL
     Indication: TRIPLE NEGATIVE BREAST CANCER
     Dosage: 75 MG, CYCLIC (EVERY WEEK, 4 CYCLES)
     Dates: start: 20130405, end: 20130621
  2. DOCETAXEL-EAGLE [Suspect]
     Active Substance: DOCETAXEL
     Indication: TRIPLE NEGATIVE BREAST CANCER
     Dosage: 75 MG, CYCLIC (EVERY WEEK, 4 CYCLES)
     Dates: start: 20130405, end: 20130621
  3. DOCETAXEL-SAGENT [Suspect]
     Active Substance: DOCETAXEL
     Indication: TRIPLE NEGATIVE BREAST CANCER
     Dosage: 75 MG, CYCLIC (EVERY WEEK, 4 CYCLES)
     Dates: start: 20130405, end: 20130621
  4. NEOSAR [Concomitant]
     Active Substance: CYCLOPHOSPHAMIDE
     Dosage: UNK
  5. DOCETAXEL ACCORD [Suspect]
     Active Substance: DOCETAXEL
     Indication: TRIPLE NEGATIVE BREAST CANCER
     Dosage: 75 MG, CYCLIC (EVERY WEEK, 4 CYCLES)
     Dates: start: 20130405, end: 20130621
  6. DOCETAXEL-NORTHSTAR [Suspect]
     Active Substance: DOCETAXEL
     Indication: TRIPLE NEGATIVE BREAST CANCER
     Dosage: 75 MG, CYCLIC (EVERY WEEK, 4 CYCLES)
     Dates: start: 20130405, end: 20130621
  7. DOCETAXEL. [Suspect]
     Active Substance: DOCETAXEL
     Indication: TRIPLE NEGATIVE BREAST CANCER
     Dosage: 75 MG, CYCLIC (EVERY WEEK, 4 CYCLES)
     Dates: start: 20130405, end: 20130621
  8. DOCETAXEL-DR. REDDY^S [Suspect]
     Active Substance: DOCETAXEL
     Indication: TRIPLE NEGATIVE BREAST CANCER
     Dosage: 75 MG, CYCLIC (EVERY WEEK, 4 CYCLES)
     Dates: start: 20130405, end: 20130621
  9. DOCETAXEL SANDOZ [Suspect]
     Active Substance: DOCETAXEL
     Indication: TRIPLE NEGATIVE BREAST CANCER
     Dosage: 75 MG, CYCLIC (EVERY WEEK, 4 CYCLES)
     Dates: start: 20130405, end: 20130621
  10. DOCETAXEL-SANOFI-AVENTIS [Suspect]
     Active Substance: DOCETAXEL
     Indication: TRIPLE NEGATIVE BREAST CANCER
     Dosage: 75 MG, CYCLIC (EVERY WEEK, 4 CYCLES)
     Dates: start: 20130405, end: 20130621
  11. DOCEFREZ [Suspect]
     Active Substance: DOCETAXEL ANHYDROUS
     Indication: TRIPLE NEGATIVE BREAST CANCER
     Dosage: 75 MG, CYCLIC (EVERY WEEK, 4 CYCLES)
     Dates: start: 20130405, end: 20130621
  12. LEVEMIR [Concomitant]
     Active Substance: INSULIN DETEMIR
     Dosage: UNK
     Dates: start: 20000801
  13. DOCETAXEL. [Suspect]
     Active Substance: DOCETAXEL
     Dosage: UNK
     Dates: start: 20130405, end: 20130621

REACTIONS (5)
  - Alopecia [Not Recovered/Not Resolved]
  - Hair disorder [Not Recovered/Not Resolved]
  - Madarosis [Not Recovered/Not Resolved]
  - Hair texture abnormal [Not Recovered/Not Resolved]
  - Hair colour changes [Not Recovered/Not Resolved]

NARRATIVE: CASE EVENT DATE: 20140101
